FAERS Safety Report 22387366 (Version 1)
Quarter: 2023Q2

REPORT INFORMATION
  Report Type: Report from Study
  Country: US (occurrence: US)
  Receive Date: 20230531
  Receipt Date: 20230531
  Transmission Date: 20230721
  Serious: Yes (Other)
  Sender: FDA-Public Use
  Company Number: US-ABBVIE-5185378

PATIENT
  Age: 66 Year
  Sex: Female

DRUGS (4)
  1. RINVOQ [Suspect]
     Active Substance: UPADACITINIB
     Indication: Psoriatic arthropathy
     Dosage: FORM STRENGTH 15 MILLIGRAM
     Route: 048
     Dates: start: 20230505
  2. COVID-19 vaccine [Concomitant]
     Indication: COVID-19 immunisation
     Dosage: FIRST DOSE
  3. COVID-19 vaccine [Concomitant]
     Indication: COVID-19 immunisation
     Dosage: SECOND DOSE
  4. COVID-19 vaccine [Concomitant]
     Indication: COVID-19 immunisation
     Dosage: BOOSTER DOSE

REACTIONS (4)
  - Cyst [Unknown]
  - Drug ineffective [Unknown]
  - Pain [Unknown]
  - Melanocytic naevus [Unknown]

NARRATIVE: CASE EVENT DATE: 20230501
